FAERS Safety Report 23671665 (Version 2)
Quarter: 2024Q2

REPORT INFORMATION
  Report Type: Spontaneous
  Country: JP (occurrence: None)
  Receive Date: 20240326
  Receipt Date: 20240429
  Transmission Date: 20240715
  Serious: Yes (Hospitalization, Other)
  Sender: FDA-Public Use
  Company Number: JP-Unichem Pharmaceuticals (USA) Inc-UCM202403-000287

PATIENT
  Sex: Female

DRUGS (3)
  1. TIZANIDINE [Suspect]
     Active Substance: TIZANIDINE
     Indication: Product used for unknown indication
  2. TIZANIDINE [Suspect]
     Active Substance: TIZANIDINE
  3. ETIZOLAM [Concomitant]
     Active Substance: ETIZOLAM
     Indication: Product used for unknown indication

REACTIONS (18)
  - Decorticate posture [Recovered/Resolved]
  - Renal impairment [Recovered/Resolved]
  - Inflammation [Recovered/Resolved]
  - Decorticate posture [Recovered/Resolved]
  - Delirium [Recovered/Resolved]
  - Abnormal behaviour [Recovered/Resolved]
  - Tachypnoea [Recovered/Resolved]
  - Tremor [Recovered/Resolved]
  - Hypertension [Recovered/Resolved]
  - Hallucination [Recovered/Resolved]
  - Tachycardia [Recovered/Resolved]
  - Hypertonia [Recovered/Resolved]
  - Hepatic function abnormal [Recovered/Resolved]
  - Postural tremor [Recovered/Resolved]
  - Withdrawal syndrome [Recovered/Resolved]
  - Drug dependence [Unknown]
  - Toxicity to various agents [Unknown]
  - Nausea [Recovered/Resolved]
